FAERS Safety Report 8298527-8 (Version None)
Quarter: 2012Q2

REPORT INFORMATION
  Report Type: 
  Country: None (occurrence: None)
  Receive Date: 20120419
  Receipt Date: 20110510
  Transmission Date: 20120825
  Serious: No
  Sender: FDA-Public Use
  Company Number: US-ABBOTT-11P-163-0725121-00

PATIENT
  Age: 17 Year
  Sex: Female

DRUGS (1)
  1. LUPRON DEPOT-PED [Suspect]
     Indication: TRANSGENDER OPERATION
     Dates: start: 20110401

REACTIONS (7)
  - MENSTRUATION IRREGULAR [None]
  - PREMENSTRUAL SYNDROME [None]
  - ANXIETY [None]
  - ASTHENIA [None]
  - DYSPNOEA [None]
  - DIZZINESS [None]
  - RETCHING [None]
